FAERS Safety Report 5680915-7 (Version None)
Quarter: 2008Q1

REPORT INFORMATION
  Report Type: 
  Country: None (occurrence: None)
  Receive Date: 20080326
  Receipt Date: 20080314
  Transmission Date: 20080703
  Serious: Yes (Other)
  Sender: FDA-Public Use
  Company Number: FR-GILEAD-2008-0015749

PATIENT
  Sex: Male

DRUGS (4)
  1. TRUVADA [Suspect]
     Indication: HIV INFECTION
     Route: 048
     Dates: start: 20080205, end: 20080219
  2. KALETRA [Suspect]
     Indication: HIV INFECTION
     Route: 048
     Dates: start: 20080205, end: 20080219
  3. 5-FLUOROURACILE MERCK [Concomitant]
     Indication: SQUAMOUS CELL CARCINOMA
     Route: 042
  4. CISPLATINE TEVA [Concomitant]
     Indication: SQUAMOUS CELL CARCINOMA
     Route: 042
     Dates: start: 20080205, end: 20080206

REACTIONS (2)
  - RASH [None]
  - TOXIC SKIN ERUPTION [None]
